FAERS Safety Report 4505801-7 (Version None)
Quarter: 2005Q1

REPORT INFORMATION
  Report Type: 
  Country: None (occurrence: None)
  Receive Date: 20041025
  Receipt Date: 20040427
  Transmission Date: 20050727
  Serious: Yes (Other)
  Sender: FDA-Public Use
  Company Number: US-JNJFOC-20031202076

PATIENT
  Age: 73 Year
  Sex: Female
  Weight: 63.5036 kg

DRUGS (10)
  1. REMICADE [Suspect]
     Indication: RHEUMATOID ARTHRITIS
     Dosage: INTRAVENOUS
     Route: 042
     Dates: start: 20010101
  2. MAZIK (TRANDOLAPRIL) [Concomitant]
  3. METHOTREXATE [Concomitant]
  4. PREDNISONE [Concomitant]
  5. VIOXX [Concomitant]
  6. TYLENOL W/ CODEINE NO. 3 [Concomitant]
  7. DOXEPIN (DOXEPIN) [Concomitant]
  8. CALTRATE (CALCIUM CARBONATE) [Concomitant]
  9. ACETAMINOPHEN [Concomitant]
  10. ALLEGA (FEXOFENADINE HYDROCHLORIDE)~ [Concomitant]

REACTIONS (8)
  - ALOPECIA [None]
  - CARDIAC VALVE DISEASE [None]
  - DIZZINESS [None]
  - LOCALISED INFECTION [None]
  - RASH [None]
  - SERUM SICKNESS [None]
  - VAGINAL MYCOSIS [None]
  - WOUND INFECTION [None]
